FAERS Safety Report 25189702 (Version 1)
Quarter: 2025Q2

REPORT INFORMATION
  Report Type: Spontaneous
  Country: US (occurrence: US)
  Receive Date: 20250411
  Receipt Date: 20250411
  Transmission Date: 20250716
  Serious: Yes (Other)
  Sender: ACCORD
  Company Number: US-Accord-478329

PATIENT
  Age: 75 Year
  Sex: Male

DRUGS (17)
  1. BUSPIRONE [Suspect]
     Active Substance: BUSPIRONE HYDROCHLORIDE
     Indication: Product used for unknown indication
     Dates: end: 2025
  2. SPIRONOLACTONE [Suspect]
     Active Substance: SPIRONOLACTONE
     Indication: Product used for unknown indication
  3. MIFEPRISTONE [Suspect]
     Active Substance: MIFEPRISTONE
     Indication: Cushing^s syndrome
     Route: 048
     Dates: start: 20240420, end: 202405
  4. PREDNISONE [Concomitant]
     Active Substance: PREDNISONE
  5. ALLOPURINOL [Concomitant]
     Active Substance: ALLOPURINOL
  6. ANASTROZOLE [Concomitant]
     Active Substance: ANASTROZOLE
  7. CHLORTHALIDONE [Concomitant]
     Active Substance: CHLORTHALIDONE
  8. IVERMECTIN [Concomitant]
     Active Substance: IVERMECTIN
  9. LIOTHYRONINE [Concomitant]
     Active Substance: LIOTHYRONINE
  10. LIVALO [Concomitant]
     Active Substance: PITAVASTATIN CALCIUM
  11. METAMUCIL [Concomitant]
     Active Substance: PLANTAGO SEED
  12. MIRALAX [Concomitant]
     Active Substance: POLYETHYLENE GLYCOL 3350
  13. POTASSIUM CITRATE [Concomitant]
     Active Substance: POTASSIUM CITRATE
  14. SYNTHROID [Concomitant]
     Active Substance: LEVOTHYROXINE SODIUM
  15. TESTOSTERONE [Concomitant]
     Active Substance: TESTOSTERONE
  16. MIFEPRISTONE [Suspect]
     Active Substance: MIFEPRISTONE
     Indication: Cushing^s syndrome
     Route: 048
     Dates: start: 202405
  17. BUSPIRONE [Suspect]
     Active Substance: BUSPIRONE HYDROCHLORIDE
     Indication: Product used for unknown indication
     Dates: start: 2025

REACTIONS (24)
  - Cataract [Unknown]
  - Dry throat [Not Recovered/Not Resolved]
  - Dysphonia [Not Recovered/Not Resolved]
  - Brain fog [Not Recovered/Not Resolved]
  - Urine oxalate increased [Unknown]
  - Eye swelling [Not Recovered/Not Resolved]
  - Mood swings [Recovered/Resolved]
  - Eyelid ptosis [Not Recovered/Not Resolved]
  - Dysphagia [Unknown]
  - Epistaxis [Recovered/Resolved]
  - Anaemia [Unknown]
  - Oropharyngeal pain [Not Recovered/Not Resolved]
  - Blood potassium decreased [Unknown]
  - Blood pressure increased [Not Recovered/Not Resolved]
  - Headache [Not Recovered/Not Resolved]
  - Constipation [Not Recovered/Not Resolved]
  - Dry mouth [Not Recovered/Not Resolved]
  - Insomnia [Recovered/Resolved]
  - Fatigue [Recovered/Resolved]
  - Blood pressure abnormal [Not Recovered/Not Resolved]
  - Peripheral swelling [Not Recovered/Not Resolved]
  - Blood corticotrophin increased [Unknown]
  - Cortisol increased [Unknown]
  - Condition aggravated [Not Recovered/Not Resolved]

NARRATIVE: CASE EVENT DATE: 20240101
